FAERS Safety Report 17659223 (Version 1)
Quarter: 2020Q2

REPORT INFORMATION
  Report Type: Spontaneous
  Country: US (occurrence: US)
  Receive Date: 20200413
  Receipt Date: 20200413
  Transmission Date: 20200713
  Serious: No
  Sender: FDA-Public Use
  Company Number: US-DRREDDYS-USA/USA/20/0121665

PATIENT
  Sex: Female

DRUGS (5)
  1. NICOTINE. [Suspect]
     Active Substance: NICOTINE
     Indication: TOBACCO USER
     Dosage: IN THE MORNING
     Route: 062
     Dates: start: 202002
  2. POTASSIUM [Concomitant]
     Active Substance: POTASSIUM
     Indication: PRODUCT USED FOR UNKNOWN INDICATION
  3. CENTRUM SELECT [Concomitant]
     Active Substance: VITAMINS
     Indication: PRODUCT USED FOR UNKNOWN INDICATION
  4. VITAMIN D [Concomitant]
     Active Substance: VITAMIN D NOS
     Indication: VITAMIN SUPPLEMENTATION
  5. VITAMIN C [Concomitant]
     Active Substance: ASCORBIC ACID
     Indication: VITAMIN SUPPLEMENTATION

REACTIONS (2)
  - Treatment noncompliance [Unknown]
  - Product use issue [Unknown]
